FAERS Safety Report 7455949 (Version 7)
Quarter: 2019Q1

REPORT INFORMATION
  Report Type: Spontaneous
  Country: ES (occurrence: ES)
  Receive Date: 20100707
  Receipt Date: 20190218
  Transmission Date: 20190418
  Serious: Yes (Hospitalization, Other)
  Sender: FDA-Public Use
  Company Number: ES-JNJFOC-20100701017

PATIENT
  Age: 54 Year
  Sex: Female

DRUGS (4)
  1. STELARA [Suspect]
     Active Substance: USTEKINUMAB
     Indication: PALMOPLANTAR PUSTULOSIS
     Route: 058
     Dates: start: 20091111, end: 20100602
  2. STELARA [Suspect]
     Active Substance: USTEKINUMAB
     Indication: PSORIASIS
     Dosage: 5 MONTHS
     Route: 058
  3. STELARA [Suspect]
     Active Substance: USTEKINUMAB
     Indication: PALMOPLANTAR PUSTULOSIS
     Dosage: 5 MONTHS
     Route: 058
  4. STELARA [Suspect]
     Active Substance: USTEKINUMAB
     Indication: PSORIASIS
     Route: 058
     Dates: start: 20091111, end: 20100602

REACTIONS (9)
  - Pericardial effusion [Recovered/Resolved]
  - Atrial flutter [Unknown]
  - Cytomegalovirus infection [Recovering/Resolving]
  - Off label use [Recovered/Resolved]
  - Ascites [Recovering/Resolving]
  - Atrial fibrillation [Unknown]
  - Herpes virus infection [Unknown]
  - Pleural effusion [Recovering/Resolving]
  - Polyserositis [Recovered/Resolved]

NARRATIVE: CASE EVENT DATE: 20091111
